FAERS Safety Report 18050596 (Version 2)
Quarter: 2020Q3

REPORT INFORMATION
  Report Type: Spontaneous
  Country: US (occurrence: US)
  Receive Date: 20200721
  Receipt Date: 20200810
  Transmission Date: 20201103
  Serious: No
  Sender: FDA-Public Use
  Company Number: US-009507513-2007USA006524

PATIENT
  Sex: Female

DRUGS (1)
  1. ALBUTEROL SULFATE. [Suspect]
     Active Substance: ALBUTEROL SULFATE
     Indication: ASTHMA
     Dosage: 4 PUFFS

REACTIONS (5)
  - Feeling abnormal [Unknown]
  - Headache [Unknown]
  - Overdose [Unknown]
  - Drug ineffective [Unknown]
  - Throat irritation [Unknown]
